FAERS Safety Report 20140098 (Version 2)
Quarter: 2022Q1

REPORT INFORMATION
  Report Type: Spontaneous
  Country: US (occurrence: None)
  Receive Date: 20211202
  Receipt Date: 20220216
  Transmission Date: 20220423
  Serious: Yes (Other)
  Sender: FDA-Public Use
  Company Number: US-ROCHE-2962220

PATIENT
  Sex: Female
  Weight: 93.978 kg

DRUGS (1)
  1. ACTEMRA [Suspect]
     Active Substance: TOCILIZUMAB
     Indication: Rheumatoid arthritis
     Route: 042
     Dates: start: 20210914

REACTIONS (3)
  - Stomatitis [Unknown]
  - Diabetes mellitus [Unknown]
  - Hyperthyroidism [Unknown]
